FAERS Safety Report 5488052-1 (Version None)
Quarter: 2007Q4

REPORT INFORMATION
  Report Type: 
  Country: None (occurrence: None)
  Receive Date: 20071001
  Receipt Date: 20060810
  Transmission Date: 20080405
  Serious: Yes (Other)
  Sender: FDA-Public Use
  Company Number: DYR2006004

PATIENT
  Age: 73 Year
  Sex: Female

DRUGS (3)
  1. TRIAMTERENE 35 MG [Suspect]
     Indication: HYPERTENSION
     Dosage: ONCE A DAY ORAL MORE THAN 10 YEARS
     Route: 048
  2. CORGARD [Suspect]
     Indication: HYPERTENSION
     Dosage: ONCE A DAY ORAL MORE THAN 10 YEARS
     Route: 048
  3. QUINIDINE 25 MG [Suspect]
     Indication: HYPERTENSION
     Dosage: ONCE A DAY ORAL MORE THAN 10 YEARS
     Route: 048

REACTIONS (4)
  - BLOOD PRESSURE INCREASED [None]
  - HEART VALVE INCOMPETENCE [None]
  - MUSCLE SPASMS [None]
  - WEIGHT DECREASED [None]
